FAERS Safety Report 24456480 (Version 2)
Quarter: 2024Q4

REPORT INFORMATION
  Report Type: Spontaneous
  Country: CA (occurrence: CA)
  Receive Date: 20241017
  Receipt Date: 20241018
  Transmission Date: 20250114
  Serious: No
  Sender: ROCHE
  Company Number: CA-ROCHE-3512971

PATIENT
  Sex: Female

DRUGS (6)
  1. RITUXIMAB [Suspect]
     Active Substance: RITUXIMAB
     Indication: Product used for unknown indication
     Dosage: LAST DOSE RECEIVED ON ; FEB/2024
     Route: 065
     Dates: start: 2021
  2. VITAMIN C [Concomitant]
     Active Substance: ASCORBIC ACID
  3. VITAMIN D3 [Concomitant]
     Active Substance: CHOLECALCIFEROL
  4. ZINC [Concomitant]
     Active Substance: ZINC
  5. IRON [Concomitant]
     Active Substance: IRON
  6. JWH-018 [Concomitant]
     Active Substance: JWH-018

REACTIONS (2)
  - Hypoaesthesia [Unknown]
  - Peroneal nerve palsy [Not Recovered/Not Resolved]
